FAERS Safety Report 14195917 (Version 2)
Quarter: 2017Q4

REPORT INFORMATION
  Report Type: Spontaneous
  Country: BE (occurrence: BE)
  Receive Date: 20171116
  Receipt Date: 20171222
  Transmission Date: 20180321
  Serious: Yes (Life-Threatening, Hospitalization)
  Sender: FDA-Public Use
  Company Number: BE-SA-2017SA223594

PATIENT
  Age: 30 Year
  Sex: Female
  Weight: 71 kg

DRUGS (3)
  1. LEMTRADA [Suspect]
     Active Substance: ALEMTUZUMAB
     Indication: MULTIPLE SCLEROSIS
     Route: 041
     Dates: start: 201411, end: 201411
  2. LEMTRADA [Suspect]
     Active Substance: ALEMTUZUMAB
     Indication: MULTIPLE SCLEROSIS
     Route: 041
     Dates: start: 201511, end: 201511
  3. STRUMAZOL [Concomitant]
     Active Substance: METHIMAZOLE
     Indication: BASEDOW^S DISEASE
     Route: 048
     Dates: start: 201610, end: 201612

REACTIONS (10)
  - Autoimmune hepatitis [Recovered/Resolved with Sequelae]
  - Jaundice [Recovered/Resolved with Sequelae]
  - Gallbladder enlargement [Recovered/Resolved]
  - Ascites [Recovered/Resolved with Sequelae]
  - Smooth muscle antibody positive [Recovered/Resolved with Sequelae]
  - Hepatitis B surface antibody [Recovered/Resolved with Sequelae]
  - Asthenia [Recovered/Resolved with Sequelae]
  - Antinuclear antibody positive [Recovered/Resolved with Sequelae]
  - Hepatocellular injury [Recovered/Resolved with Sequelae]
  - Hepatosplenomegaly [Recovered/Resolved with Sequelae]

NARRATIVE: CASE EVENT DATE: 201610
